FAERS Safety Report 17975155 (Version 1)
Quarter: 2020Q3

REPORT INFORMATION
  Report Type: Spontaneous
  Country: US (occurrence: US)
  Receive Date: 20200702
  Receipt Date: 20200702
  Transmission Date: 20201103
  Serious: No
  Sender: FDA-Public Use
  Company Number: US-BAUSCH-BL-2020-018031

PATIENT
  Age: 76 Year
  Sex: Female

DRUGS (1)
  1. LATANOPROST. [Suspect]
     Active Substance: LATANOPROST
     Indication: OCULAR HYPERTENSION
     Dosage: EACH EYE
     Route: 047
     Dates: start: 2018

REACTIONS (2)
  - Photopsia [Not Recovered/Not Resolved]
  - Retinal pigmentation [Unknown]
